FAERS Safety Report 18246130 (Version 3)
Quarter: 2020Q3

REPORT INFORMATION
  Report Type: Report from Study
  Country: JP (occurrence: JP)
  Receive Date: 20200909
  Receipt Date: 20200918
  Transmission Date: 20201103
  Serious: Yes (Other)
  Sender: FDA-Public Use
  Company Number: JP-ASTELLAS-2020JP013212

PATIENT
  Age: 45 Year
  Sex: Female
  Weight: 64 kg

DRUGS (11)
  1. CALONAL [Concomitant]
     Active Substance: ACETAMINOPHEN
     Indication: TUMOUR PAIN
     Route: 048
     Dates: start: 20200820
  2. ASG?22CE [Suspect]
     Active Substance: ENFORTUMAB VEDOTIN
     Indication: BREAST CANCER
     Dosage: 80 MG, WEEKLY FOR 3 CONSECUTIVE WEEKS FOLLOWED BY 1 WEEK REST
     Route: 042
     Dates: start: 20200827
  3. ANETOCAINE [Concomitant]
     Indication: TUMOUR PAIN
     Dosage: ADEQUATE DOSE, AS NEEDED
     Route: 061
     Dates: start: 20200827
  4. LANSOPRAZOLE. [Concomitant]
     Active Substance: LANSOPRAZOLE
     Indication: GASTRITIS PROPHYLAXIS
     Route: 048
     Dates: start: 202003
  5. NARURAPID [Concomitant]
     Active Substance: HYDROMORPHONE HYDROCHLORIDE
     Indication: TUMOUR PAIN
     Route: 048
     Dates: start: 202003
  6. TALION [BEPOTASTINE BESILATE] [Concomitant]
     Active Substance: BEPOTASTINE BESYLATE
     Indication: PRURITUS
     Route: 048
     Dates: start: 20200901, end: 20200903
  7. CELECOXIB. [Concomitant]
     Active Substance: CELECOXIB
     Indication: TUMOUR PAIN
     Route: 048
     Dates: start: 202003
  8. WHITE PETROLATUM [Concomitant]
     Active Substance: PETROLATUM
     Indication: PROPHYLAXIS
     Dosage: ADEQUATE DOSE, AS NEEDED
     Route: 061
     Dates: start: 20200820
  9. TARLIGE [Concomitant]
     Active Substance: MIROGABALIN BESYLATE
     Indication: TUMOUR PAIN
     Route: 048
     Dates: start: 20200827
  10. SYMPROIC [Concomitant]
     Active Substance: NALDEMEDINE
     Indication: CONSTIPATION PROPHYLAXIS
     Dosage: 0.2 MG, ONCE DAILY
     Route: 048
     Dates: start: 20200827
  11. NARUSUS [Concomitant]
     Active Substance: HYDROMORPHONE HYDROCHLORIDE
     Indication: TUMOUR PAIN
     Dosage: 10 MG/DAY, UNKNOWN FREQ.
     Route: 048
     Dates: start: 20200827

REACTIONS (1)
  - Alanine aminotransferase increased [Recovering/Resolving]

NARRATIVE: CASE EVENT DATE: 20200903
